FAERS Safety Report 8908515 (Version 1)
Quarter: 2012Q4

REPORT INFORMATION
  Report Type: Report from Study
  Country: CA (occurrence: CA)
  Receive Date: 20121114
  Receipt Date: 20121114
  Transmission Date: 20130627
  Serious: Yes (Other)
  Sender: FDA-Public Use
  Company Number: CA-ROCHE-1155179

PATIENT
  Sex: Female
  Weight: 70.82 kg

DRUGS (6)
  1. BEVACIZUMAB [Suspect]
     Indication: COLORECTAL CANCER
     Route: 042
     Dates: start: 20120921, end: 20121015
  2. COUMADIN [Concomitant]
  3. DIGOXIN [Concomitant]
  4. ATENOLOL [Concomitant]
  5. HYDROCHLOROTHIAZIDE [Concomitant]
  6. LIPITOR [Concomitant]

REACTIONS (1)
  - Neoplasm [Not Recovered/Not Resolved]
